FAERS Safety Report 8463395-8 (Version None)
Quarter: 2012Q2

REPORT INFORMATION
  Report Type: 
  Country: None (occurrence: None)
  Receive Date: 20120625
  Receipt Date: 20120615
  Transmission Date: 20120825
  Serious: Yes (Hospitalization, Other)
  Sender: FDA-Public Use
  Company Number: US-MERCK-1202USA03880

PATIENT
  Age: 77 Year
  Sex: Female

DRUGS (3)
  1. FOSAMAX [Suspect]
     Indication: OSTEOPOROSIS
     Route: 048
     Dates: start: 19950101, end: 20070101
  2. FOSAMAX [Suspect]
     Route: 048
     Dates: end: 20070101
  3. IBUPROFEN (ADVIL) [Concomitant]
     Route: 065

REACTIONS (37)
  - SPONDYLOLISTHESIS [None]
  - PUBIS FRACTURE [None]
  - OSTEOPENIA [None]
  - INTERVERTEBRAL DISC PROTRUSION [None]
  - GAIT DISTURBANCE [None]
  - ABDOMINAL DISCOMFORT [None]
  - GOUT [None]
  - ARTHRITIS [None]
  - SPINAL FRACTURE [None]
  - LIMB ASYMMETRY [None]
  - OSTEOARTHRITIS [None]
  - HUMERUS FRACTURE [None]
  - DYSPNOEA [None]
  - FRACTURED SACRUM [None]
  - ABDOMINAL HERNIA [None]
  - ROTATOR CUFF SYNDROME [None]
  - FALL [None]
  - OSTEOPOROTIC FRACTURE [None]
  - DIZZINESS [None]
  - DRUG INEFFECTIVE [None]
  - PATELLOFEMORAL PAIN SYNDROME [None]
  - FEMUR FRACTURE [None]
  - INTERVERTEBRAL DISC DEGENERATION [None]
  - SMALL INTESTINAL OBSTRUCTION [None]
  - SYNOVITIS [None]
  - OEDEMA PERIPHERAL [None]
  - BURSITIS [None]
  - STRESS FRACTURE [None]
  - FRACTURE DISPLACEMENT [None]
  - CHOLECYSTITIS ACUTE [None]
  - HYPERTENSION [None]
  - DEVICE COMPONENT ISSUE [None]
  - BONE DISORDER [None]
  - SYNOVIAL CYST [None]
  - DIARRHOEA [None]
  - CHEST DISCOMFORT [None]
  - REFUSAL OF TREATMENT BY PATIENT [None]
